FAERS Safety Report 19907942 (Version 1)
Quarter: 2021Q3

REPORT INFORMATION
  Report Type: Report from Study
  Country: None (occurrence: US)
  Receive Date: 20210930
  Receipt Date: 20210930
  Transmission Date: 20211014
  Serious: Yes (Other)
  Sender: FDA-Public Use
  Company Number: US-ABBVIE-21K-163-4098607-00

PATIENT
  Sex: Male

DRUGS (2)
  1. HUMIRA [Suspect]
     Active Substance: ADALIMUMAB
     Indication: CROHN^S DISEASE
     Dosage: CITRATE FREE
     Route: 058
  2. COVID?19 VACCINE [Concomitant]
     Indication: COVID-19 IMMUNISATION
     Dosage: JOHNSON + JOHNSON
     Route: 030

REACTIONS (10)
  - Haemoglobin decreased [Unknown]
  - Antinuclear antibody positive [Unknown]
  - Oropharyngeal pain [Unknown]
  - Inflammatory marker increased [Unknown]
  - Pulmonary mass [Recovering/Resolving]
  - Ear pain [Unknown]
  - Pleurisy [Unknown]
  - White blood cell count increased [Unknown]
  - Heart rate increased [Unknown]
  - Systemic lupus erythematosus [Unknown]
